FAERS Safety Report 17086324 (Version 1)
Quarter: 2019Q4

REPORT INFORMATION
  Report Type: Spontaneous
  Country: US (occurrence: US)
  Receive Date: 20191031
  Receipt Date: 20191031
  Transmission Date: 20200122
  Serious: Yes (Death)
  Sender: FDA-Public Use
  Company Number: None

PATIENT
  Age: 71 Year
  Sex: Male
  Weight: 67.4 kg

DRUGS (3)
  1. BORTEZOMIB. [Concomitant]
     Active Substance: BORTEZOMIB
  2. RITUXIMAB (MOAB C2B8) [Concomitant]
     Active Substance: RITUXIMAB
  3. BENDAMUSTINE HYDROCHLORIDE. [Suspect]
     Active Substance: BENDAMUSTINE HYDROCHLORIDE

REACTIONS (7)
  - Neuropathy peripheral [None]
  - Pain [None]
  - Lymphadenopathy [None]
  - Langerhans^ cell histiocytosis [None]
  - Pulmonary mass [None]
  - Headache [None]
  - Anxiety [None]

NARRATIVE: CASE EVENT DATE: 20190116
